FAERS Safety Report 4396075-9 (Version None)
Quarter: 2004Q3

REPORT INFORMATION
  Report Type: 
  Country: None (occurrence: None)
  Receive Date: 20040707
  Receipt Date: 20040628
  Transmission Date: 20050211
  Serious: Yes (Hospitalization)
  Sender: FDA-Public Use
  Company Number: 200410346BYL

PATIENT
  Age: 81 Year
  Sex: Female

DRUGS (5)
  1. ADALAT [Suspect]
     Indication: HYPERTENSION
     Dosage: 20 MG, QD,ORAL
     Route: 048
  2. BLOPRESS [Concomitant]
  3. MOBIC [Concomitant]
  4. CEROCRAL [Concomitant]
  5. MYONAL [Concomitant]

REACTIONS (2)
  - BLOOD ALKALINE PHOSPHATASE INCREASED [None]
  - GAMMA-GLUTAMYLTRANSFERASE INCREASED [None]
